FAERS Safety Report 10229898 (Version 1)
Quarter: 2014Q2

REPORT INFORMATION
  Report Type: Spontaneous
  Country: US (occurrence: None)
  Receive Date: 20140610
  Receipt Date: 20140610
  Transmission Date: 20141212
  Serious: No
  Sender: FDA-Public Use
  Company Number: None

PATIENT
  Age: 68 Year
  Sex: Female

DRUGS (8)
  1. AMPYRA [Suspect]
     Indication: PLASMA CELL MYELOMA
     Route: 048
     Dates: start: 201107, end: 201304
  2. REBIF [Concomitant]
  3. GABAPENTIN [Concomitant]
  4. MELOXICAM [Concomitant]
  5. ALENDRONAT [Concomitant]
  6. IMIPRAMINE [Concomitant]
  7. METHYLPHENIDATE [Concomitant]
  8. ZOCOR [Concomitant]

REACTIONS (1)
  - Renal impairment [None]
